FAERS Safety Report 12275517 (Version 2)
Quarter: 2016Q2

REPORT INFORMATION
  Report Type: Spontaneous
  Country: US (occurrence: US)
  Receive Date: 20160415
  Receipt Date: 20160512
  Transmission Date: 20160815
  Serious: No
  Sender: FDA-Public Use
  Company Number: US-UCBSA-2015028753

PATIENT
  Age: 84 Year
  Sex: Female
  Weight: 43 kg

DRUGS (1)
  1. NEUPRO [Suspect]
     Active Substance: ROTIGOTINE
     Indication: RESTLESS LEGS SYNDROME
     Dosage: 1 MG, ONCE DAILY (QD)
     Dates: start: 20150903, end: 201603

REACTIONS (5)
  - Application site rash [Not Recovered/Not Resolved]
  - Insomnia [Not Recovered/Not Resolved]
  - Application site erythema [Not Recovered/Not Resolved]
  - Drug ineffective [Unknown]
  - Application site pruritus [Not Recovered/Not Resolved]

NARRATIVE: CASE EVENT DATE: 201509
